FAERS Safety Report 8896405 (Version 2)
Quarter: 2013Q1

REPORT INFORMATION
  Report Type: Spontaneous
  Country: FR (occurrence: None)
  Receive Date: 20121102
  Receipt Date: 20121108
  Transmission Date: 20140127
  Serious: Yes (Life-Threatening, Hospitalization)
  Sender: FDA-Public Use
  Company Number: SP06164

PATIENT
  Age: 50 Year
  Sex: Male

DRUGS (1)
  1. OSMOPREP [Suspect]
     Indication: BOWEL PREPARATION
     Dosage: (4 DOSAGE FORMS), ORAL
     Route: 048
     Dates: start: 20120422, end: 20120422

REACTIONS (4)
  - Angioedema [None]
  - Malaise [None]
  - Loss of consciousness [None]
  - Anaphylactic shock [None]
